FAERS Safety Report 20897170 (Version 1)
Quarter: 2022Q2

REPORT INFORMATION
  Report Type: Spontaneous
  Country: GB (occurrence: GB)
  Receive Date: 20220531
  Receipt Date: 20220531
  Transmission Date: 20220721
  Serious: Yes (Other)
  Sender: FDA-Public Use
  Company Number: None

PATIENT
  Sex: Female

DRUGS (2)
  1. ESTROGENS, CONJUGATED AND MEDROXYPROGESTERONE ACETATE [Suspect]
     Active Substance: ESTROGENS, CONJUGATED\MEDROXYPROGESTERONE ACETATE
     Indication: Menopause
     Dosage: LOW DOSE 0.3MG/1.5MG
  2. TOLTERODINE [Concomitant]
     Active Substance: TOLTERODINE

REACTIONS (2)
  - Premenstrual pain [Unknown]
  - Vaginal haemorrhage [Recovered/Resolved]
